FAERS Safety Report 5360780-8 (Version None)
Quarter: 2007Q2

REPORT INFORMATION
  Report Type: 
  Country: None (occurrence: None)
  Receive Date: 20070618
  Receipt Date: 20070606
  Transmission Date: 20071010
  Serious: Yes (Hospitalization)
  Sender: FDA-Public Use
  Company Number: AU-SANOFI-SYNTHELABO-A01200706024

PATIENT
  Age: 28 Year
  Sex: Female

DRUGS (2)
  1. CODALGIN [Concomitant]
     Indication: DRUG USE FOR UNKNOWN INDICATION
     Dosage: 2 DF
     Route: 048
  2. ZOLPIDEM [Suspect]
     Indication: SLEEP DISORDER
     Dosage: PATIENT TOOK UP TO 15 TABLETS OF  10 MG DAILY
     Route: 048

REACTIONS (10)
  - AGITATION [None]
  - AMNESIA [None]
  - ANXIETY [None]
  - DRUG ABUSER [None]
  - DRUG DEPENDENCE [None]
  - HALLUCINATION [None]
  - IMPAIRED DRIVING ABILITY [None]
  - INTENTIONAL SELF-INJURY [None]
  - SLEEP TALKING [None]
  - SLEEP WALKING [None]
